FAERS Safety Report 4354529-5 (Version None)
Quarter: 2004Q2

REPORT INFORMATION
  Report Type: 
  Country: None (occurrence: None)
  Receive Date: 20040503
  Receipt Date: 20040420
  Transmission Date: 20050107
  Serious: Yes (Hospitalization)
  Sender: FDA-Public Use
  Company Number: US-JNJFOC-20040404614

PATIENT
  Age: 55 Year
  Sex: Female

DRUGS (3)
  1. ULTRAM [Suspect]
     Indication: DRUG USE FOR UNKNOWN INDICATION
     Dosage: 50 MG, ORAL
     Route: 048
  2. IMDUR [Concomitant]
  3. COUMADIN [Concomitant]

REACTIONS (5)
  - DYSPNOEA [None]
  - HEADACHE [None]
  - IRRITABILITY [None]
  - MIGRAINE [None]
  - MYOCARDIAL INFARCTION [None]
